FAERS Safety Report 19678186 (Version 4)
Quarter: 2021Q4

REPORT INFORMATION
  Report Type: Report from Study
  Country: CA (occurrence: CA)
  Receive Date: 20210809
  Receipt Date: 20211125
  Transmission Date: 20220304
  Serious: Yes (Hospitalization)
  Sender: FDA-Public Use
  Company Number: CA-ABBVIE-21K-028-4028790-00

PATIENT
  Sex: Male

DRUGS (3)
  1. RINVOQ [Suspect]
     Active Substance: UPADACITINIB
     Indication: Rheumatoid arthritis
     Route: 048
     Dates: start: 20210201
  2. XARELTO [Concomitant]
     Active Substance: RIVAROXABAN
     Indication: Product used for unknown indication
     Dates: start: 2021
  3. PRO-ACETYLSALICYLIC ACID [Concomitant]
     Indication: Product used for unknown indication
     Dates: end: 2021

REACTIONS (13)
  - Cardiac operation [Recovered/Resolved]
  - Pulmonary oedema [Unknown]
  - Peripheral swelling [Unknown]
  - Arthralgia [Recovered/Resolved]
  - Syncope [Unknown]
  - Heart rate abnormal [Unknown]
  - Arthralgia [Unknown]
  - Irritability [Unknown]
  - Pain in extremity [Unknown]
  - Finger deformity [Unknown]
  - Insomnia [Unknown]
  - Swelling [Unknown]
  - Pain [Unknown]

NARRATIVE: CASE EVENT DATE: 20210101
